FAERS Safety Report 5008527-9 (Version None)
Quarter: 2006Q2

REPORT INFORMATION
  Report Type: 
  Country: None (occurrence: None)
  Receive Date: 20060523
  Receipt Date: 20051212
  Transmission Date: 20061013
  Serious: Yes (Hospitalization)
  Sender: FDA-Public Use
  Company Number: US-SANOFI-SYNTHELABO-A03200504244

PATIENT
  Sex: Male
  Weight: 77.1 kg

DRUGS (1)
  1. AMBIEN [Suspect]
     Indication: INSOMNIA
     Route: 048
     Dates: start: 20051030, end: 20060501

REACTIONS (7)
  - ANXIETY [None]
  - DETOXIFICATION [None]
  - DRUG ABUSER [None]
  - IMPAIRED WORK ABILITY [None]
  - PANIC ATTACK [None]
  - ROAD TRAFFIC ACCIDENT [None]
  - TREMOR [None]
